FAERS Safety Report 15356224 (Version 1)
Quarter: 2018Q3

REPORT INFORMATION
  Report Type: Other
  Country: US (occurrence: US)
  Receive Date: 20180906
  Receipt Date: 20180906
  Transmission Date: 20181010
  Serious: No
  Sender: FDA-Public Use
  Company Number: US-INTERCEPT-PMOCA2018000951

PATIENT

DRUGS (1)
  1. OCALIVA [Suspect]
     Active Substance: OBETICHOLIC ACID
     Indication: PRIMARY BILIARY CHOLANGITIS
     Dosage: 5 MG, QOD
     Route: 048
     Dates: start: 20180609

REACTIONS (6)
  - Visual impairment [Recovered/Resolved]
  - Headache [Unknown]
  - Pruritus [Not Recovered/Not Resolved]
  - Rash [Unknown]
  - Vomiting [Unknown]
  - Dizziness [Unknown]

NARRATIVE: CASE EVENT DATE: 20180609
